FAERS Safety Report 7917283-3 (Version None)
Quarter: 2011Q4

REPORT INFORMATION
  Report Type: 
  Country: None (occurrence: None)
  Receive Date: 20111116
  Receipt Date: 20111104
  Transmission Date: 20120403
  Serious: Yes (Hospitalization, Other)
  Sender: FDA-Public Use
  Company Number: PHHY2011DE50532

PATIENT
  Sex: Male
  Weight: 75 kg

DRUGS (5)
  1. CLINDAMYCIN [Concomitant]
     Indication: ANTIBIOTIC THERAPY
  2. DOCETAXEL [Concomitant]
     Indication: METASTASES TO BONE
     Dosage: 53.2 MG, PER DAY
     Route: 042
     Dates: start: 20100714, end: 20100929
  3. PREDNISOLONE [Concomitant]
     Indication: METASTASES TO BONE
     Dosage: 10 MG, PER DAY
     Route: 048
     Dates: start: 20100714, end: 20100929
  4. ZOMETA [Suspect]
     Indication: METASTASES TO BONE
     Dosage: 4 MG / 100 ML, QW4
     Route: 042
     Dates: start: 20091008, end: 20100916
  5. DEXAMETHASON [Concomitant]
     Indication: METASTASES TO BONE
     Dosage: 8 MG, PER DAY
     Route: 042
     Dates: start: 20100713, end: 20100929

REACTIONS (3)
  - OSTEONECROSIS OF JAW [None]
  - TENDERNESS [None]
  - PAIN [None]
